FAERS Safety Report 4503458-2 (Version None)
Quarter: 2004Q4

REPORT INFORMATION
  Report Type: 
  Country: None (occurrence: None)
  Receive Date: 20041112
  Receipt Date: 20041020
  Transmission Date: 20050328
  Serious: Yes (Hospitalization)
  Sender: FDA-Public Use
  Company Number: 2004CG00413

PATIENT
  Age: 59 Year
  Sex: Female

DRUGS (3)
  1. IRESSA [Suspect]
     Indication: OVARIAN CANCER
     Dosage: 500 MG DAILY PO
     Route: 048
     Dates: start: 20031021, end: 20040209
  2. TAXOL [Suspect]
     Indication: OVARIAN CANCER
     Dosage: 175 MG/M2 Q3WK IV
     Route: 042
     Dates: start: 20031021, end: 20040119
  3. PARAPLATIN [Suspect]
     Indication: OVARIAN CANCER
     Dates: start: 20031021, end: 20040119

REACTIONS (2)
  - DISEASE PROGRESSION [None]
  - PNEUMOTHORAX [None]
